FAERS Safety Report 25856592 (Version 3)
Quarter: 2025Q4

REPORT INFORMATION
  Report Type: Report from Study
  Country: US (occurrence: None)
  Receive Date: 20250929
  Receipt Date: 20251023
  Transmission Date: 20260118
  Serious: Yes (Other)
  Sender: UCB
  Company Number: US-UCBSA-2025059579

PATIENT
  Weight: 94.785 kg

DRUGS (17)
  1. LEVETIRACETAM [Suspect]
     Active Substance: LEVETIRACETAM
     Indication: Seizure
     Dosage: 1500 MILLIGRAM, 2X/DAY (BID)
  2. VIMPAT [Suspect]
     Active Substance: LACOSAMIDE
     Indication: Product used for unknown indication
     Dosage: 150 MILLIGRAM, 2X/DAY (BID)
  3. ONFI [Suspect]
     Active Substance: CLOBAZAM
     Indication: Product used for unknown indication
     Dosage: UNK
  4. TOPAMAX [Suspect]
     Active Substance: TOPIRAMATE
     Indication: Product used for unknown indication
     Dosage: 50 MILLIGRAM
  5. NEURONTIN [Suspect]
     Active Substance: GABAPENTIN
     Indication: Product used for unknown indication
  6. TRILEPTAL [Suspect]
     Active Substance: OXCARBAZEPINE
     Indication: Product used for unknown indication
     Dosage: UNK
  7. TEGRETOL [Suspect]
     Active Substance: CARBAMAZEPINE
     Indication: Product used for unknown indication
  8. MYSOLINE [Suspect]
     Active Substance: PRIMIDONE
     Indication: Product used for unknown indication
     Dosage: UNK
  9. LAMICTAL [Suspect]
     Active Substance: LAMOTRIGINE
     Indication: Product used for unknown indication
     Dosage: UNK
  10. DEPAKOTE [Suspect]
     Active Substance: DIVALPROEX SODIUM
     Indication: Product used for unknown indication
  11. OXTELLAR XR [Concomitant]
     Active Substance: OXCARBAZEPINE
     Indication: Product used for unknown indication
     Dosage: 900 MILLIGRAM, 3X/DAY (TID)
  12. FLUTICASONE PROPIONATE [Concomitant]
     Active Substance: FLUTICASONE PROPIONATE
     Indication: Product used for unknown indication
     Dosage: 50 MCGLACTUATION NASAL SPRAY,SUSPENSION
  13. COVID-19 VACCINE [Concomitant]
     Indication: Product used for unknown indication
     Dosage: 0.5 MILLILITER
  14. COVID-19 VACCINE [Concomitant]
     Dosage: 0.5 MILLILITER
  15. COVID-19 VACCINE [Concomitant]
     Dosage: 0.5 MILLILITER
  16. TETANUS TOXOID, REDUCED DIPHTHERIA TOXOID AND ACELLULAR PERTUSSIS VACC [Concomitant]
     Active Substance: TETANUS TOXOID, REDUCED DIPHTHERIA TOXOID AND ACELLULAR PERTUSSIS VACCINE ADSORBED, TDAP
     Indication: Product used for unknown indication
     Dosage: 0.5 MILLILITER
  17. VALIUM [Concomitant]
     Active Substance: DIAZEPAM
     Indication: Seizure
     Dosage: UNK, 2X/DAY (BID)

REACTIONS (11)
  - Seizure [Unknown]
  - Intestinal obstruction [Unknown]
  - Focal dyscognitive seizures [Unknown]
  - Benign neoplasm of spinal cord [Unknown]
  - Hypoaesthesia [Unknown]
  - Rash [Unknown]
  - Vomiting [Unknown]
  - Hepatic function abnormal [Unknown]
  - Drug level changed [Unknown]
  - Drug ineffective [Unknown]
  - Drug intolerance [Unknown]
